FAERS Safety Report 21647716 (Version 3)
Quarter: 2023Q1

REPORT INFORMATION
  Report Type: Report from Study
  Country: US (occurrence: US)
  Receive Date: 20221128
  Receipt Date: 20230227
  Transmission Date: 20230417
  Serious: Yes (Hospitalization)
  Sender: FDA-Public Use
  Company Number: US-BoehringerIngelheim-2022-BI-198353

PATIENT
  Age: 76 Year
  Sex: Female

DRUGS (1)
  1. OFEV [Suspect]
     Active Substance: NINTEDANIB
     Indication: Idiopathic pulmonary fibrosis
     Route: 048
     Dates: start: 20180119

REACTIONS (6)
  - Arteriovenous fistula thrombosis [Unknown]
  - Arteriovenous fistula site haemorrhage [Unknown]
  - Arteriovenous fistula site infection [Not Recovered/Not Resolved]
  - Musculoskeletal pain [Unknown]
  - Fall [Unknown]
  - Thrombosis in device [Unknown]

NARRATIVE: CASE EVENT DATE: 20220101
